FAERS Safety Report 18451709 (Version 1)
Quarter: 2020Q4

REPORT INFORMATION
  Report Type: Report from Study
  Country: US (occurrence: US)
  Receive Date: 20201102
  Receipt Date: 20201102
  Transmission Date: 20210114
  Serious: Yes (Death, Hospitalization, Other)
  Sender: FDA-Public Use
  Company Number: US-BRISTOL-MYERS SQUIBB COMPANY-BMS-2020-064134

PATIENT
  Age: 67 Year
  Sex: Female

DRUGS (1)
  1. DASATINIB. [Suspect]
     Active Substance: DASATINIB
     Indication: ACUTE LYMPHOCYTIC LEUKAEMIA
     Dosage: 100 MILLIGRAM, QD
     Route: 048
     Dates: start: 202007

REACTIONS (6)
  - Abdominal pain upper [Unknown]
  - Death [Fatal]
  - Leukaemia recurrent [Unknown]
  - Malaise [Unknown]
  - Condition aggravated [Unknown]
  - Haematochezia [Unknown]

NARRATIVE: CASE EVENT DATE: 202010
